FAERS Safety Report 7892491-9 (Version None)
Quarter: 2011Q4

REPORT INFORMATION
  Report Type: 
  Country: None (occurrence: None)
  Receive Date: 20111102
  Receipt Date: 20111018
  Transmission Date: 20120403
  Serious: Yes (Hospitalization)
  Sender: FDA-Public Use
  Company Number: 2011SP044396

PATIENT
  Age: 72 Year
  Sex: Male
  Weight: 70.7 kg

DRUGS (7)
  1. RAMIPRIL [Concomitant]
  2. FORTECORTIN [Concomitant]
  3. TEMOZOLOMIDE [Suspect]
     Indication: PRODUCT USED FOR UNKNOWN INDICATION
     Dosage: 150 MG
     Dates: start: 20110830, end: 20110919
  4. TEMOZOLOMIDE [Suspect]
  5. OXCARBAZEPINE [Concomitant]
  6. TEMOZOLOMIDE [Suspect]
  7. PANTOPRAZOLE SODIUM [Concomitant]

REACTIONS (6)
  - URINARY RETENTION [None]
  - URINARY TRACT INFECTION [None]
  - CONCOMITANT DISEASE PROGRESSION [None]
  - EPILEPSY [None]
  - RENAL FAILURE [None]
  - NEOPLASM PROGRESSION [None]
